FAERS Safety Report 22725687 (Version 2)
Quarter: 2024Q2

REPORT INFORMATION
  Report Type: Spontaneous
  Country: US (occurrence: US)
  Receive Date: 20230719
  Receipt Date: 20240524
  Transmission Date: 20240716
  Serious: No
  Sender: FDA-Public Use
  Company Number: US-Covis Pharma GmbH-2023COV01415

PATIENT
  Age: 15 Year
  Sex: Male

DRUGS (1)
  1. FERUMOXYTOL [Suspect]
     Active Substance: FERUMOXYTOL
     Indication: Imaging procedure
     Dosage: 3MG/KG
     Route: 042

REACTIONS (1)
  - Off label use [Unknown]
